FAERS Safety Report 17443090 (Version 1)
Quarter: 2020Q1

REPORT INFORMATION
  Report Type: Spontaneous
  Country: US (occurrence: US)
  Receive Date: 20200220
  Receipt Date: 20200220
  Transmission Date: 20200409
  Serious: No
  Sender: FDA-Public Use
  Company Number: None

PATIENT
  Age: 57 Year
  Sex: Male
  Weight: 133.2 kg

DRUGS (1)
  1. TESTOSTERONE GEL [Suspect]
     Active Substance: TESTOSTERONE
     Indication: BLOOD TESTOSTERONE
     Dosage: ?          QUANTITY:1 TUBE;?
     Route: 061
     Dates: start: 20200121, end: 20200122

REACTIONS (2)
  - Product odour abnormal [None]
  - Headache [None]

NARRATIVE: CASE EVENT DATE: 20200121
